FAERS Safety Report 24281605 (Version 1)
Quarter: 2024Q3

REPORT INFORMATION
  Report Type: Spontaneous
  Country: KR (occurrence: KR)
  Receive Date: 20240904
  Receipt Date: 20240904
  Transmission Date: 20241016
  Serious: No
  Sender: PFIZER
  Company Number: KR-PFIZER INC-PV202400114554

PATIENT
  Age: 12 Year
  Sex: Male

DRUGS (1)
  1. GENOTROPIN [Suspect]
     Active Substance: SOMATROPIN
     Dosage: 4 IU X 6 TIMES WEEKLY

REACTIONS (2)
  - Device delivery system issue [Unknown]
  - Device mechanical issue [Unknown]
